FAERS Safety Report 21741948 (Version 7)
Quarter: 2023Q2

REPORT INFORMATION
  Report Type: Report from Study
  Country: US (occurrence: US)
  Receive Date: 20221216
  Receipt Date: 20230518
  Transmission Date: 20230722
  Serious: No
  Sender: FDA-Public Use
  Company Number: US-002147023-NVSC2022US289922

PATIENT
  Sex: Male

DRUGS (2)
  1. ENTRESTO [Suspect]
     Active Substance: SACUBITRIL\VALSARTAN
     Indication: Product used for unknown indication
     Dosage: 1 DOSAGE FORM, BID
     Route: 048
  2. ENTRESTO [Suspect]
     Active Substance: SACUBITRIL\VALSARTAN
     Dosage: 1 DOSAGE FORM, BID
     Route: 048

REACTIONS (11)
  - Pollakiuria [Unknown]
  - Weight increased [Unknown]
  - Vitreous floaters [Unknown]
  - Blood glucose increased [Unknown]
  - Head injury [Unknown]
  - COVID-19 [Unknown]
  - Gait disturbance [Unknown]
  - Blister [Unknown]
  - Wound [Unknown]
  - Hypersensitivity [Unknown]
  - Rhinorrhoea [Recovering/Resolving]
